FAERS Safety Report 7498930-X (Version None)
Quarter: 2011Q2

REPORT INFORMATION
  Report Type: 
  Country: None (occurrence: None)
  Receive Date: 20110516
  Receipt Date: 20110507
  Transmission Date: 20111010
  Serious: Yes (Other)
  Sender: FDA-Public Use
  Company Number: 913843

PATIENT
  Age: 62 Year
  Sex: Male

DRUGS (5)
  1. CARBOPLATIN [Suspect]
     Indication: NEOPLASM PROGRESSION
  2. CARBOPLATIN [Suspect]
     Indication: BLADDER CANCER
  3. MIITOMYCIN C [Suspect]
     Indication: BLADDER TRANSITIONAL CELL CARCINOMA
  4. GEMCITABINE [Suspect]
     Indication: NEOPLASM PROGRESSION
     Dosage: 800 MG/M2
  5. GEMCITABINE [Suspect]
     Indication: BLADDER CANCER
     Dosage: 800 MG/M2

REACTIONS (17)
  - THROMBOTIC MICROANGIOPATHY [None]
  - LUNG INFILTRATION [None]
  - THROMBOCYTOPENIA [None]
  - ANAEMIA [None]
  - PLEURAL EFFUSION [None]
  - RENAL TUBULAR ATROPHY [None]
  - FOCAL SEGMENTAL GLOMERULOSCLEROSIS [None]
  - STAPHYLOCOCCUS TEST POSITIVE [None]
  - KIDNEY FIBROSIS [None]
  - RENAL ARTERY ARTERIOSCLEROSIS [None]
  - CANDIDA TEST POSITIVE [None]
  - LABORATORY TEST INTERFERENCE [None]
  - NAUSEA [None]
  - VOMITING [None]
  - DYSPNOEA [None]
  - METASTATIC CARCINOMA OF THE BLADDER [None]
  - TOXICITY TO VARIOUS AGENTS [None]
